FAERS Safety Report 10524436 (Version 12)
Quarter: 2016Q3

REPORT INFORMATION
  Report Type: Spontaneous
  Country: US (occurrence: US)
  Receive Date: 20141017
  Receipt Date: 20160912
  Transmission Date: 20161109
  Serious: Yes (Hospitalization, Other)
  Sender: FDA-Public Use
  Company Number: US-SA-2013SA125783

PATIENT
  Age: 74 Year
  Sex: Male

DRUGS (16)
  1. ASPIRIN. [Suspect]
     Active Substance: ASPIRIN
     Route: 048
  2. LOTENSIN [Concomitant]
     Active Substance: BENAZEPRIL HYDROCHLORIDE
  3. NORVASC [Concomitant]
     Active Substance: AMLODIPINE BESYLATE
     Route: 048
  4. METFORMIN [Concomitant]
     Active Substance: METFORMIN HYDROCHLORIDE
  5. GLUCOTROL [Concomitant]
     Active Substance: GLIPIZIDE
  6. COREG [Concomitant]
     Active Substance: CARVEDILOL
     Route: 048
  7. AVAPRO [Concomitant]
     Active Substance: IRBESARTAN
  8. AVANDIA [Concomitant]
     Active Substance: ROSIGLITAZONE MALEATE
  9. ADALAT [Concomitant]
     Active Substance: NIFEDIPINE
  10. JANUVIA [Concomitant]
     Active Substance: SITAGLIPTIN PHOSPHATE
  11. NORVASC [Concomitant]
     Active Substance: AMLODIPINE BESYLATE
  12. BENAZEPRIL [Concomitant]
     Active Substance: BENAZEPRIL HYDROCHLORIDE
     Route: 048
  13. ZOCOR [Concomitant]
     Active Substance: SIMVASTATIN
     Route: 048
  14. PLAVIX [Suspect]
     Active Substance: CLOPIDOGREL BISULFATE
     Indication: STENT PLACEMENT
     Route: 065
     Dates: start: 200911, end: 20101228
  15. ASPIRIN. [Suspect]
     Active Substance: ASPIRIN
     Route: 048
     Dates: start: 20090413, end: 201012
  16. GLUCOTROL [Concomitant]
     Active Substance: GLIPIZIDE
     Route: 048

REACTIONS (6)
  - Multiple injuries [Unknown]
  - Chronic gastritis [Unknown]
  - Melaena [Not Recovered/Not Resolved]
  - Duodenal ulcer [Unknown]
  - Haemorrhagic anaemia [Unknown]
  - Gastrointestinal haemorrhage [Not Recovered/Not Resolved]

NARRATIVE: CASE EVENT DATE: 2010
